FAERS Safety Report 16859106 (Version 1)
Quarter: 2019Q3

REPORT INFORMATION
  Report Type: Other
  Country: US (occurrence: US)
  Receive Date: 20190926
  Receipt Date: 20190926
  Transmission Date: 20191005
  Serious: No
  Sender: FDA-Public Use
  Company Number: US-VERASTEM-2019-00082

PATIENT

DRUGS (3)
  1. PERCOCET                           /00446701/ [Concomitant]
     Active Substance: ACETAMINOPHEN\OXYCODONE HYDROCHLORIDE\OXYCODONE TEREPHTHALATE
     Indication: PRODUCT USED FOR UNKNOWN INDICATION
  2. COPIKTRA [Suspect]
     Active Substance: DUVELISIB
     Indication: DIFFUSE LARGE B-CELL LYMPHOMA
     Dosage: 15 MG BID
     Route: 048
     Dates: start: 20190513, end: 20190730
  3. COPIKTRA [Suspect]
     Active Substance: DUVELISIB
     Indication: PLASMA CELL MYELOMA
     Dosage: 15 MG, BID
     Route: 048
     Dates: start: 20190513, end: 20190618

REACTIONS (9)
  - Confusional state [Recovering/Resolving]
  - Positron emission tomogram abnormal [Unknown]
  - Haemoglobin decreased [Recovering/Resolving]
  - Product use in unapproved indication [Not Recovered/Not Resolved]
  - White blood cell count decreased [Recovering/Resolving]
  - Constipation [Not Recovered/Not Resolved]
  - Pyrexia [Recovered/Resolved]
  - Diarrhoea [Unknown]
  - Prescribed underdose [Not Recovered/Not Resolved]

NARRATIVE: CASE EVENT DATE: 20190513
